FAERS Safety Report 4396065-6 (Version None)
Quarter: 2004Q3

REPORT INFORMATION
  Report Type: 
  Country: None (occurrence: None)
  Receive Date: 20040707
  Receipt Date: 20040623
  Transmission Date: 20050211
  Serious: Yes (Hospitalization)
  Sender: FDA-Public Use
  Company Number: FR-JNJFOC-20040606332

PATIENT
  Age: 1 Day
  Sex: Male
  Weight: 3 kg

DRUGS (1)
  1. TOPIRAMATE [Suspect]
     Dosage: INTRA-UTERINE
     Route: 064

REACTIONS (15)
  - ASPARTATE AMINOTRANSFERASE INCREASED [None]
  - BRAIN OEDEMA [None]
  - DRUG EXPOSURE DURING PREGNANCY [None]
  - DRUG WITHDRAWAL SYNDROME NEONATAL [None]
  - EXCITABILITY [None]
  - FEEDING PROBLEM IN NEWBORN [None]
  - FOETAL DISTRESS SYNDROME [None]
  - GAMMA-GLUTAMYLTRANSFERASE INCREASED [None]
  - HYPOTONIA NEONATAL [None]
  - JAUNDICE NEONATAL [None]
  - METABOLIC ACIDOSIS [None]
  - NEONATAL DISORDER [None]
  - PREMATURE BABY [None]
  - PROTHROMBIN LEVEL DECREASED [None]
  - UMBILICAL CORD PROLAPSE [None]
